FAERS Safety Report 8398866-6 (Version None)
Quarter: 2012Q2

REPORT INFORMATION
  Report Type: 
  Country: None (occurrence: None)
  Receive Date: 20120531
  Receipt Date: 20120522
  Transmission Date: 20120825
  Serious: Yes (Hospitalization)
  Sender: FDA-Public Use
  Company Number: NL-B.I. PHARMACEUTICALS,INC./RIDGEFIELD-2012-NL-00215NL

PATIENT
  Sex: Female

DRUGS (3)
  1. SPIRIVA [Suspect]
     Dosage: 18 MCG
     Route: 055
     Dates: start: 20080917, end: 20120401
  2. SPIRIVA [Suspect]
     Indication: CHRONIC OBSTRUCTIVE PULMONARY DISEASE
     Dosage: 5 MCG
     Route: 055
     Dates: start: 20080917, end: 20120401
  3. FORADIL [Concomitant]
     Dosage: 24 MCG
     Route: 055
     Dates: start: 20111117

REACTIONS (4)
  - BLOOD PRESSURE INCREASED [None]
  - PALPITATIONS [None]
  - FLUID RETENTION [None]
  - ATRIAL FIBRILLATION [None]
